FAERS Safety Report 5394964-X (Version None)
Quarter: 2007Q3

REPORT INFORMATION
  Report Type: 
  Country: None (occurrence: None)
  Receive Date: 20070724
  Receipt Date: 20070716
  Transmission Date: 20080115
  Serious: Yes (Hospitalization, Other)
  Sender: FDA-Public Use
  Company Number: PHEH2007US05266

PATIENT
  Age: 23 Year
  Sex: Male
  Weight: 53 kg

DRUGS (3)
  1. EXJADE [Suspect]
     Indication: IRON OVERLOAD
     Dosage: 1000 MG, QD
     Route: 048
     Dates: start: 20070101, end: 20070110
  2. VANCOMYCIN [Concomitant]
     Indication: STAPHYLOCOCCAL INFECTION
     Dosage: 1.5 G, Q12H
     Route: 042
     Dates: start: 20070102, end: 20070110
  3. ZOSYN [Concomitant]
     Indication: STAPHYLOCOCCAL INFECTION
     Dosage: 3.3 G, Q6H
     Route: 042
     Dates: start: 20070101, end: 20070110

REACTIONS (3)
  - BLOOD CREATININE INCREASED [None]
  - DRUG TOXICITY [None]
  - SICKLE CELL ANAEMIA WITH CRISIS [None]
